FAERS Safety Report 4697840-0 (Version None)
Quarter: 2005Q2

REPORT INFORMATION
  Report Type: 
  Country: None (occurrence: None)
  Receive Date: 20050621
  Receipt Date: 20050621
  Transmission Date: 20051028
  Serious: No
  Sender: FDA-Public Use
  Company Number: None

PATIENT
  Age: 56 Year
  Sex: Female
  Weight: 70 kg

DRUGS (1)
  1. PROMETHAZINE [Suspect]
     Indication: VOMITING
     Dosage: 50MG   ONCE    INTRAVENOU
     Route: 042
     Dates: start: 20050513, end: 20050513

REACTIONS (1)
  - DYSARTHRIA [None]
